FAERS Safety Report 21629084 (Version 2)
Quarter: 2024Q4

REPORT INFORMATION
  Report Type: Spontaneous
  Country: US (occurrence: US)
  Receive Date: 20221122
  Receipt Date: 20241120
  Transmission Date: 20250115
  Serious: No
  Sender: SANOFI AVENTIS
  Company Number: US-SA-SAC20221116001525

PATIENT
  Age: 8 Year
  Sex: Male
  Weight: 39.41 kg

DRUGS (1)
  1. DUPIXENT [Suspect]
     Active Substance: DUPILUMAB
     Indication: Dermatitis atopic
     Dosage: 300 MG, Q4W
     Route: 058
     Dates: start: 20221024

REACTIONS (6)
  - Dry skin [Unknown]
  - Decreased appetite [Unknown]
  - Vomiting [Unknown]
  - Skin exfoliation [Unknown]
  - Erythema [Unknown]
  - Off label use [Unknown]
